FAERS Safety Report 18957989 (Version 1)
Quarter: 2021Q1

REPORT INFORMATION
  Report Type: Spontaneous
  Country: US (occurrence: US)
  Receive Date: 20210302
  Receipt Date: 20210302
  Transmission Date: 20210420
  Serious: Yes (Other)
  Sender: FDA-Public Use
  Company Number: US-PFIZER INC-2021171696

PATIENT
  Age: 72 Year
  Sex: Female
  Weight: 88.89 kg

DRUGS (1)
  1. PREMARIN [Suspect]
     Active Substance: ESTROGENS, CONJUGATED
     Dosage: 0.3 MG, ALTERNATE DAY
     Route: 048

REACTIONS (1)
  - Cataract [Unknown]
